FAERS Safety Report 11441710 (Version 4)
Quarter: 2016Q1

REPORT INFORMATION
  Report Type: Spontaneous
  Country: HK (occurrence: HK)
  Receive Date: 20150901
  Receipt Date: 20160304
  Transmission Date: 20160525
  Serious: Yes (Hospitalization)
  Sender: FDA-Public Use
  Company Number: HK-PFIZER INC-2015284154

PATIENT
  Age: 48 Year
  Sex: Female

DRUGS (1)
  1. DILANTIN [Suspect]
     Active Substance: PHENYTOIN
     Dosage: UNK

REACTIONS (4)
  - Anticonvulsant drug level decreased [Unknown]
  - Drug ineffective [Unknown]
  - Product measured potency issue [Unknown]
  - Seizure [Unknown]
